FAERS Safety Report 13302033 (Version 1)
Quarter: 2017Q1

REPORT INFORMATION
  Report Type: Report from Study
  Country: US (occurrence: US)
  Receive Date: 20170307
  Receipt Date: 20170307
  Transmission Date: 20170428
  Serious: Yes (Other)
  Sender: FDA-Public Use
  Company Number: US-ROCHE-1900696

PATIENT

DRUGS (7)
  1. ERLOTINIB [Suspect]
     Active Substance: ERLOTINIB
     Indication: NON-SMALL CELL LUNG CANCER
     Route: 065
  2. BEVACIZUMAB [Suspect]
     Active Substance: BEVACIZUMAB
     Indication: NON-SMALL CELL LUNG CANCER
     Route: 065
  3. CISPLATIN. [Suspect]
     Active Substance: CISPLATIN
     Indication: NON-SMALL CELL LUNG CANCER
     Route: 065
  4. PACLITAXEL. [Suspect]
     Active Substance: PACLITAXEL
     Indication: NON-SMALL CELL LUNG CANCER
     Route: 065
  5. GEMCITABINE [Suspect]
     Active Substance: GEMCITABINE\GEMCITABINE HYDROCHLORIDE
     Indication: NON-SMALL CELL LUNG CANCER
     Route: 065
  6. CARBOPLATIN. [Suspect]
     Active Substance: CARBOPLATIN
     Indication: NON-SMALL CELL LUNG CANCER
     Route: 065
  7. PEMETREXED [Suspect]
     Active Substance: PEMETREXED
     Indication: NON-SMALL CELL LUNG CANCER
     Route: 065

REACTIONS (23)
  - Angina pectoris [Unknown]
  - Fistula [Unknown]
  - Neutropenia [Unknown]
  - Arterial thrombosis [Unknown]
  - Pulmonary embolism [Unknown]
  - Leukopenia [Unknown]
  - Cardiac failure [Unknown]
  - Impaired healing [Unknown]
  - Venous thrombosis [Unknown]
  - Visual impairment [Unknown]
  - Haemorrhage [Unknown]
  - Diarrhoea [Unknown]
  - Cerebrovascular accident [Unknown]
  - Anaemia [Unknown]
  - Hepatotoxicity [Unknown]
  - Transient ischaemic attack [Unknown]
  - Gastrointestinal perforation [Unknown]
  - Acute myocardial infarction [Unknown]
  - Neuropathy peripheral [Unknown]
  - Bone marrow failure [Unknown]
  - Pruritus [Unknown]
  - Rash [Unknown]
  - Thrombocytopenia [Unknown]
